FAERS Safety Report 24268590 (Version 1)
Quarter: 2024Q3

REPORT INFORMATION
  Report Type: Spontaneous
  Country: US (occurrence: US)
  Receive Date: 20240830
  Receipt Date: 20240830
  Transmission Date: 20241016
  Serious: No
  Sender: MAYNE
  Company Number: US-MAYNE PHARMA-2024MYN000315

PATIENT

DRUGS (2)
  1. ANNOVERA [Suspect]
     Active Substance: ETHINYL ESTRADIOL\SEGESTERONE ACETATE
     Indication: Product used for unknown indication
     Dosage: UNK
     Route: 067
     Dates: start: 202403
  2. ANNOVERA [Suspect]
     Active Substance: ETHINYL ESTRADIOL\SEGESTERONE ACETATE
     Dosage: UNK
     Route: 067
     Dates: start: 202407

REACTIONS (2)
  - Intermenstrual bleeding [Unknown]
  - Breast tenderness [Unknown]

NARRATIVE: CASE EVENT DATE: 20240701
